FAERS Safety Report 8620320-4 (Version None)
Quarter: 2012Q3

REPORT INFORMATION
  Report Type: 
  Country: None (occurrence: None)
  Receive Date: 20120824
  Receipt Date: 20120821
  Transmission Date: 20120928
  Serious: No
  Sender: FDA-Public Use
  Company Number: US-ASTRAZENECA-2011SE41450

PATIENT
  Age: 59 Year
  Sex: Female

DRUGS (46)
  1. NEXIUM [Suspect]
     Route: 048
  2. NEXIUM [Suspect]
     Route: 048
     Dates: start: 20050225
  3. ZANTAC [Concomitant]
     Dosage: ONCE A DAY
     Dates: start: 19920101, end: 19940101
  4. MESTRON [Concomitant]
     Indication: MUSCLE DISORDER
  5. ASPIRIN [Concomitant]
     Indication: CARDIAC DISORDER
  6. PANTOPRAZOLE [Concomitant]
     Indication: ABDOMINAL DISCOMFORT
  7. DIAZEPAM [Concomitant]
     Indication: SLEEP DISORDER
  8. NEXIUM [Suspect]
     Route: 048
     Dates: start: 20050225
  9. NEXIUM [Suspect]
     Route: 048
     Dates: start: 20090622
  10. NEXIUM [Suspect]
     Route: 048
     Dates: start: 20090622
  11. MYCOPHENOLATE MOFETIL (CELLCEPT) [Concomitant]
     Dates: start: 20061116
  12. CARVEDILOL [Concomitant]
     Indication: BLOOD PRESSURE
  13. SINGULAIR [Concomitant]
     Indication: SINUS DISORDER
  14. DETROL XL [Concomitant]
     Indication: HYPERTONIC BLADDER
     Dates: start: 20061116
  15. NEXIUM [Suspect]
     Indication: GASTROOESOPHAGEAL REFLUX DISEASE
     Dosage: 20 OR 40 MG ONCE A DAY
     Route: 048
     Dates: start: 20010101, end: 20110101
  16. NEXIUM [Suspect]
     Indication: ULCER
     Dosage: 20 OR 40 MG ONCE A DAY
     Route: 048
     Dates: start: 20010101, end: 20110101
  17. NEXIUM [Suspect]
     Route: 048
  18. PREMARIN [Concomitant]
     Indication: OESTROGEN THERAPY
     Dates: start: 19970301
  19. PREMARIN [Concomitant]
     Dosage: 625
     Dates: start: 20061116
  20. PREMARIN [Concomitant]
     Dates: start: 20090622
  21. LORATADINE [Concomitant]
     Indication: SINUS DISORDER
     Route: 048
  22. DIAZEPAM [Concomitant]
     Indication: DEPRESSION
  23. PRISTIQ [Concomitant]
     Indication: POOR QUALITY SLEEP
  24. GABAPENTIN [Concomitant]
     Indication: PAIN
     Dosage: 300 MG 3 TABLETS AT BEDTIME
  25. HYDROCODONE BITARTRATE [Concomitant]
     Indication: BONE PAIN
     Dosage: 5 TO 3.25 MG 6 TO 8 HOURS AS NEEDED
  26. PEPCID [Concomitant]
     Dates: start: 19920101, end: 19940101
  27. MESTINON [Concomitant]
     Dates: start: 19970301
  28. PRILOSEC [Concomitant]
  29. MYCOPHENOLATE MOFETIL (CELLCEPT) [Concomitant]
     Indication: MUSCLE DISORDER
     Dosage: 500 MG 2 TABLETS TWICE A DAY
  30. EFFEXOR [Concomitant]
     Route: 048
     Dates: start: 20041215
  31. ZOLOFT [Concomitant]
     Dates: start: 20061116
  32. DETROL XL [Concomitant]
     Dosage: EVERY DAY
     Dates: start: 20070308
  33. NEXIUM [Suspect]
     Route: 048
  34. NEXIUM [Suspect]
     Route: 048
     Dates: start: 20090622
  35. PRILOSEC [Concomitant]
     Dates: start: 19970301
  36. FOSAMAX [Concomitant]
     Indication: OSTEOPOROSIS
  37. PREMARIN [Concomitant]
     Dates: start: 20070308
  38. SUCRALFATE [Concomitant]
     Indication: GASTRITIS PROPHYLAXIS
     Dosage: 1 GM 1 TABLET HALF HOUR BEFORE EACH MEAL
  39. FLUCONAZOLE [Concomitant]
     Route: 048
     Dates: start: 20050202
  40. NEXIUM [Suspect]
     Route: 048
     Dates: start: 20050225
  41. PREMARIN [Concomitant]
  42. LIPITOR [Concomitant]
     Indication: BLOOD CHOLESTEROL
  43. NEXIUM [Suspect]
     Indication: GASTRIC DISORDER
     Dosage: 20 OR 40 MG ONCE A DAY
     Route: 048
     Dates: start: 20010101, end: 20110101
  44. MESTINON [Concomitant]
     Dates: start: 20061116
  45. MESTINON [Concomitant]
     Dates: start: 20090622
  46. CYCLOBENZAPRINE [Concomitant]
     Route: 048
     Dates: start: 20050202

REACTIONS (13)
  - ANKLE FRACTURE [None]
  - DYSPEPSIA [None]
  - OSTEOPOROSIS [None]
  - DYSPHAGIA [None]
  - POOR QUALITY SLEEP [None]
  - ARTHRITIS [None]
  - GASTRIC DISORDER [None]
  - VITAMIN D DEFICIENCY [None]
  - CALCIUM DEFICIENCY [None]
  - CHILLS [None]
  - DEPRESSION [None]
  - GRIEF REACTION [None]
  - PYREXIA [None]
